FAERS Safety Report 5356406-X (Version None)
Quarter: 2007Q2

REPORT INFORMATION
  Report Type: 
  Country: None (occurrence: None)
  Receive Date: 20070613
  Receipt Date: 20070604
  Transmission Date: 20071010
  Serious: Yes (Hospitalization)
  Sender: FDA-Public Use
  Company Number: AU-MERCK-0706AUS00013

PATIENT
  Age: 57 Year
  Sex: Male

DRUGS (5)
  1. CANCIDAS [Suspect]
     Indication: ASPERGILLOSIS
     Route: 051
  2. CANCIDAS [Suspect]
     Route: 065
  3. AMPHOTERICIN B AND CHOLESTEROL AND DISTEAROYLPHOSPHATIDYLGLYCEROL AND [Concomitant]
     Indication: ASPERGILLOSIS
     Route: 065
  4. VORICONAZOLE [Concomitant]
     Indication: ASPERGILLOSIS
     Route: 065
  5. OXYGEN [Concomitant]
     Indication: PULMONARY FIBROSIS
     Route: 065

REACTIONS (9)
  - ACUTE MYOCARDIAL INFARCTION [None]
  - CARDIOGENIC SHOCK [None]
  - COAGULOPATHY [None]
  - CORONARY ARTERY OCCLUSION [None]
  - FUNGAL ENDOCARDITIS [None]
  - RESPIRATORY FAILURE [None]
  - SEPSIS [None]
  - THROMBOCYTOPENIA [None]
  - VENTRICULAR HYPOKINESIA [None]
